FAERS Safety Report 8008871-7 (Version None)
Quarter: 2011Q4

REPORT INFORMATION
  Report Type: 
  Country: None (occurrence: None)
  Receive Date: 20111227
  Receipt Date: 20111222
  Transmission Date: 20120403
  Serious: Yes (Hospitalization)
  Sender: FDA-Public Use
  Company Number: PHHO2011RU021396

PATIENT
  Sex: Male
  Weight: 79 kg

DRUGS (6)
  1. BLINDED ALISKIREN [Suspect]
     Dosage: CODE NOT BROKEN
     Route: 048
     Dates: start: 20100111, end: 20111215
  2. BLINDED NO TREATMENT RECEIVED [Suspect]
     Dosage: CODE NOT BROKEN
     Route: 048
     Dates: start: 20100111, end: 20111215
  3. KETOROLAC TROMETHAMINE [Suspect]
     Indication: PAIN
     Dosage: 10 MG, Q8H
     Route: 048
     Dates: start: 20111210, end: 20111216
  4. SPASGAN [Concomitant]
  5. ENALAPRIL MALEATE [Suspect]
     Dosage: CODE NOT BROKEN
     Route: 048
     Dates: start: 20100111, end: 20111215
  6. PHENAZEPAM [Concomitant]

REACTIONS (10)
  - EROSIVE OESOPHAGITIS [None]
  - GASTRITIS EROSIVE [None]
  - CARDIAC FAILURE [None]
  - HEPATORENAL SYNDROME [None]
  - DISEASE PROGRESSION [None]
  - HEPATITIS ACUTE [None]
  - CHOLESTASIS [None]
  - HEPATORENAL FAILURE [None]
  - ISCHAEMIC CARDIOMYOPATHY [None]
  - BRONCHOPNEUMONIA [None]
